FAERS Safety Report 19246736 (Version 3)
Quarter: 2021Q2

REPORT INFORMATION
  Report Type: Not Available
  Country: None (occurrence: None)
  Receive Date: 20210512
  Receipt Date: 20210617
  Transmission Date: 20210717
  Serious: Yes (Other)
  Sender: FDA-Public Use
  Company Number: US-AKORN-166840

PATIENT
  Age: 28 Year
  Sex: Female

DRUGS (1)
  1. MYORISAN [Suspect]
     Active Substance: ISOTRETINOIN

REACTIONS (6)
  - Abortion induced [Recovered/Resolved]
  - Treatment noncompliance [Recovered/Resolved]
  - Nausea [Unknown]
  - Exposure during pregnancy [Recovered/Resolved]
  - Off label use [Recovered/Resolved]
  - Headache [Unknown]

NARRATIVE: CASE EVENT DATE: 20210416
